FAERS Safety Report 11636093 (Version 1)
Quarter: 2015Q4

REPORT INFORMATION
  Report Type: Spontaneous
  Country: US (occurrence: US)
  Receive Date: 20151016
  Receipt Date: 20151016
  Transmission Date: 20160304
  Serious: No
  Sender: FDA-Public Use
  Company Number: US-WEST-WARD PHARMACEUTICALS CORP.-US-H14001-14-00207

PATIENT
  Sex: Female

DRUGS (4)
  1. BACLOFEN. [Suspect]
     Active Substance: BACLOFEN
     Indication: MULTIPLE SCLEROSIS
     Route: 065
  2. DURAMORPH [Suspect]
     Active Substance: MORPHINE SULFATE
     Indication: MULTIPLE SCLEROSIS
     Route: 065
  3. BACLOFEN. [Suspect]
     Active Substance: BACLOFEN
     Indication: MUSCLE SPASTICITY
     Route: 065
  4. DURAMORPH [Suspect]
     Active Substance: MORPHINE SULFATE
     Indication: MUSCLE SPASTICITY
     Dosage: DOSE INCREASED.
     Route: 065

REACTIONS (2)
  - Underdose [Unknown]
  - Drug ineffective [Unknown]
